FAERS Safety Report 12184024 (Version 2)
Quarter: 2016Q2

REPORT INFORMATION
  Report Type: Spontaneous
  Country: US (occurrence: US)
  Receive Date: 20160316
  Receipt Date: 20160601
  Transmission Date: 20160815
  Serious: No
  Sender: FDA-Public Use
  Company Number: US-009507513-1603USA003828

PATIENT

DRUGS (3)
  1. TACROLIMUS. [Concomitant]
     Active Substance: TACROLIMUS
     Dosage: UNKNOWN
  2. NOXAFIL [Suspect]
     Active Substance: POSACONAZOLE
     Dosage: UNK, QD (STRENGTH: 300, UNITS UNSPECIFIED)
     Route: 042
     Dates: start: 201602
  3. NOXAFIL [Suspect]
     Active Substance: POSACONAZOLE
     Indication: FEBRILE NEUTROPENIA
     Dosage: UNK, QD (STRENGTH: 300, UNITS UNSPECIFIED)
     Route: 042
     Dates: start: 201602

REACTIONS (2)
  - Product deposit [Unknown]
  - Product quality issue [Unknown]

NARRATIVE: CASE EVENT DATE: 201602
